FAERS Safety Report 14543405 (Version 2)
Quarter: 2018Q2

REPORT INFORMATION
  Report Type: Report from Study
  Country: US (occurrence: US)
  Receive Date: 20180216
  Receipt Date: 20180619
  Transmission Date: 20180711
  Serious: No
  Sender: FDA-Public Use
  Company Number: PHEH2018US005785

PATIENT
  Sex: Male
  Weight: 62 kg

DRUGS (2)
  1. ENTRESTO [Suspect]
     Active Substance: SACUBITRIL\VALSARTAN
     Indication: PRODUCT USED FOR UNKNOWN INDICATION
     Dosage: UNK
     Route: 065
  2. ENTRESTO [Suspect]
     Active Substance: SACUBITRIL\VALSARTAN
     Dosage: 50 MG (24MG OF SACUBITRIL AND 26MG OF VALSARTAN), UNK
     Route: 065
     Dates: start: 20171206

REACTIONS (4)
  - Feeling abnormal [Unknown]
  - Drug intolerance [Unknown]
  - Asthenia [Unknown]
  - Malaise [Unknown]
